FAERS Safety Report 5958697-0 (Version None)
Quarter: 2008Q4

REPORT INFORMATION
  Report Type: 
  Country: None (occurrence: None)
  Receive Date: 20081119
  Receipt Date: 20081107
  Transmission Date: 20090506
  Serious: Yes (Other)
  Sender: FDA-Public Use
  Company Number: GB-PFIZER INC-2008095913

PATIENT
  Age: 68 Year
  Sex: Female

DRUGS (6)
  1. DOXYCYCLINE [Suspect]
     Indication: INFECTION
  2. FUSIDIC ACID [Suspect]
     Indication: INFECTION
  3. MINOCYCLINE HCL [Suspect]
     Indication: INFECTION
  4. MEROPENEM [Concomitant]
  5. PRISTINAMYCIN [Concomitant]
  6. VANCOMYCIN [Concomitant]

REACTIONS (3)
  - ABDOMINAL DISCOMFORT [None]
  - DIARRHOEA [None]
  - DRUG INTOLERANCE [None]
